FAERS Safety Report 11519184 (Version 1)
Quarter: 2015Q3

REPORT INFORMATION
  Report Type: Report from Study
  Country: MX (occurrence: MX)
  Receive Date: 20150917
  Receipt Date: 20150917
  Transmission Date: 20151125
  Serious: Yes (Other)
  Sender: FDA-Public Use
  Company Number: MX-AMGEN-MEXSL2015095112

PATIENT
  Age: 62 Year
  Sex: Female
  Weight: 76 kg

DRUGS (1)
  1. PROLIA [Suspect]
     Active Substance: DENOSUMAB
     Indication: OSTEOPOROSIS
     Dosage: 60 MG/ML, Q6MO
     Route: 058
     Dates: start: 201410

REACTIONS (5)
  - Arthralgia [Unknown]
  - Adverse drug reaction [Unknown]
  - Vulvovaginal mycotic infection [Unknown]
  - Gingival abscess [Unknown]
  - Tinea pedis [Unknown]

NARRATIVE: CASE EVENT DATE: 201411
